FAERS Safety Report 6356736-9 (Version None)
Quarter: 2009Q3

REPORT INFORMATION
  Report Type: 
  Country: None (occurrence: None)
  Receive Date: 20090915
  Receipt Date: 20090904
  Transmission Date: 20100115
  Serious: Yes (Other)
  Sender: FDA-Public Use
  Company Number: PH-BRISTOL-MYERS SQUIBB COMPANY-14555106

PATIENT
  Age: 67 Year
  Sex: Male

DRUGS (16)
  1. APIXABAN [Suspect]
     Indication: THROMBOSIS PROPHYLAXIS
     Route: 048
     Dates: start: 20090312
  2. COUMADIN [Suspect]
     Indication: THROMBOSIS PROPHYLAXIS
     Route: 048
     Dates: start: 20090312
  3. PLACEBO [Suspect]
     Indication: THROMBOSIS PROPHYLAXIS
     Route: 048
     Dates: start: 20090312
  4. LANOXIN [Concomitant]
     Dosage: 1/2 TAB PER TAB
     Dates: start: 19930101
  5. NORTAN [Concomitant]
     Dosage: FORM = TABS
     Dates: start: 19990101
  6. ALDAZIDE [Concomitant]
     Dosage: FORMULATION- TABLET
     Dates: start: 19990101
  7. NEOBLOC [Concomitant]
     Dosage: FORMULATION - TABLET STRENGTH = 50MG 1 DOSAGEFORM = 1/2 TAB
     Dates: start: 19990101
  8. ELTROXIN [Concomitant]
     Dosage: FORM = TABS STRENGTH 50 MG
     Dates: start: 19930101
  9. ISOSORBIDE DINITRATE [Concomitant]
     Dosage: FORM = TABS STRENGTH 10 MG 1 DOSAGEFORM = 1/2 TABS
     Dates: start: 19930101
  10. CARNICOR [Concomitant]
     Dosage: FORMULATION- TABLET STRENGTH 330MG
     Dates: start: 19930101
  11. CITICOLINE [Concomitant]
     Dosage: FORMULATION- TABLET STRENGTH 500MG
     Dates: start: 20080101
  12. ALANERV [Concomitant]
     Dosage: 1 DOSAGE = 1 SOFTGEL CAPSULE
     Dates: start: 20080101
  13. MULTI-VITAMIN [Concomitant]
     Dosage: 1 DOSAGE FORM = 1 TABLET
     Dates: start: 19930101
  14. CALCI-AID [Concomitant]
     Dosage: 1 DOSAGE FORM = 1 TAB
     Dates: start: 19930101
  15. VITAMIN B 1-6-12 [Concomitant]
     Dosage: 1 DOSAGE FORM = 1 TABLET
     Dates: start: 20080101
  16. IMIDAPRIL HCL [Concomitant]
     Dates: start: 19990101

REACTIONS (2)
  - CONVULSION [None]
  - TRANSIENT ISCHAEMIC ATTACK [None]
